FAERS Safety Report 4832259-0 (Version None)
Quarter: 2005Q4

REPORT INFORMATION
  Report Type: 
  Country: None (occurrence: None)
  Receive Date: 20051118
  Receipt Date: 20051110
  Transmission Date: 20060501
  Serious: Yes (Hospitalization)
  Sender: FDA-Public Use
  Company Number: JP-ABBOTT-05P-087-0317129-00

PATIENT
  Sex: Male

DRUGS (12)
  1. HOKUNALIN TAPE [Suspect]
     Indication: ASTHMA
     Route: 062
     Dates: start: 20050304, end: 20050408
  2. HOKUNALIN TAPE [Suspect]
     Dates: start: 20051024, end: 20051110
  3. SULPIRIDE [Concomitant]
     Indication: DRUG USE FOR UNKNOWN INDICATION
     Route: 048
     Dates: start: 20050304, end: 20051110
  4. DIAZEPAM [Concomitant]
     Indication: DRUG USE FOR UNKNOWN INDICATION
     Dates: start: 20050304, end: 20051110
  5. DILTIAZEM HYDROCHLORIDE [Concomitant]
     Indication: DRUG USE FOR UNKNOWN INDICATION
     Route: 048
     Dates: start: 20050304, end: 20051110
  6. GLYCYRON [Concomitant]
     Indication: DRUG USE FOR UNKNOWN INDICATION
     Route: 048
     Dates: start: 20050304, end: 20051110
  7. SUCRALFATE [Concomitant]
     Indication: DRUG USE FOR UNKNOWN INDICATION
     Route: 048
     Dates: start: 20050304, end: 20051110
  8. THEOPHYLLINE [Concomitant]
     Indication: DRUG USE FOR UNKNOWN INDICATION
     Route: 048
     Dates: start: 20050304, end: 20051110
  9. ALLOPURINOL [Concomitant]
     Indication: DRUG USE FOR UNKNOWN INDICATION
     Route: 048
     Dates: start: 20050304, end: 20051110
  10. RANITIDINE HYDROCHLORIDE [Concomitant]
     Indication: DRUG USE FOR UNKNOWN INDICATION
     Route: 048
     Dates: start: 20050304, end: 20051110
  11. FLUTICASONE PROPIONATE [Concomitant]
     Indication: DRUG USE FOR UNKNOWN INDICATION
     Route: 055
     Dates: start: 20050304, end: 20051110
  12. PREDNISOLONE [Concomitant]
     Indication: DRUG USE FOR UNKNOWN INDICATION
     Route: 048
     Dates: start: 20050304, end: 20051105

REACTIONS (1)
  - RASH [None]
